FAERS Safety Report 18622972 (Version 1)
Quarter: 2020Q4

REPORT INFORMATION
  Report Type: Spontaneous
  Country: US (occurrence: US)
  Receive Date: 20201216
  Receipt Date: 20201216
  Transmission Date: 20210114
  Serious: No
  Sender: FDA-Public Use
  Company Number: None

PATIENT
  Age: 70 Year
  Sex: Female
  Weight: 88.4 kg

DRUGS (10)
  1. AMLODIPINE BESYLATE. [Concomitant]
     Active Substance: AMLODIPINE BESYLATE
  2. ELIQUIS [Concomitant]
     Active Substance: APIXABAN
  3. IBRANCE [Suspect]
     Active Substance: PALBOCICLIB
     Dates: start: 20201125
  4. MULTIVITAMIN WOMEN [Concomitant]
  5. LETROZOLE. [Suspect]
     Active Substance: LETROZOLE
  6. MULTIVITAMIN WOMEN [Concomitant]
  7. FERROUS SULFATE. [Concomitant]
     Active Substance: FERROUS SULFATE
  8. LETROZOLE. [Concomitant]
     Active Substance: LETROZOLE
  9. ACETAMINOPHEN. [Concomitant]
     Active Substance: ACETAMINOPHEN
  10. LOVENOX [Concomitant]
     Active Substance: ENOXAPARIN SODIUM

REACTIONS (2)
  - Hot flush [None]
  - Alopecia [None]

NARRATIVE: CASE EVENT DATE: 20201201
